FAERS Safety Report 18920450 (Version 1)
Quarter: 2021Q1

REPORT INFORMATION
  Report Type: Spontaneous
  Country: CA (occurrence: CA)
  Receive Date: 20210222
  Receipt Date: 20210222
  Transmission Date: 20210420
  Serious: Yes (Hospitalization)
  Sender: FDA-Public Use
  Company Number: CA-ROCHE-2772594

PATIENT
  Age: 52 Year
  Sex: Female

DRUGS (22)
  1. RISPERIDONE. [Suspect]
     Active Substance: RISPERIDONE
     Indication: PSYCHOTIC DISORDER
     Route: 048
  2. LITHIUM. [Concomitant]
     Active Substance: LITHIUM
  3. CLONAZEPAM. [Suspect]
     Active Substance: CLONAZEPAM
     Indication: HYPOMANIA
     Route: 048
  4. OLANZAPINE. [Suspect]
     Active Substance: OLANZAPINE
     Indication: PSYCHOTIC DISORDER
     Route: 048
  5. NYSTATIN. [Concomitant]
     Active Substance: NYSTATIN
  6. PROCYCLIDINE HCL [Suspect]
     Active Substance: PROCYCLIDINE HYDROCHLORIDE
     Indication: MUSCULOSKELETAL STIFFNESS
     Route: 048
  7. LACTULOSE. [Concomitant]
     Active Substance: LACTULOSE
  8. 3TC [Concomitant]
     Active Substance: LAMIVUDINE
  9. KALETRA [Concomitant]
     Active Substance: LOPINAVIR\RITONAVIR
  10. SERTRALINE [Concomitant]
     Active Substance: SERTRALINE HYDROCHLORIDE
  11. T?20 [Concomitant]
     Active Substance: ENFUVIRTIDE
  12. DIAZEPAM. [Suspect]
     Active Substance: DIAZEPAM
     Indication: DEPRESSION
     Route: 048
  13. OLANZAPINE. [Suspect]
     Active Substance: OLANZAPINE
     Route: 048
  14. PROCYCLIDINE HCL [Suspect]
     Active Substance: PROCYCLIDINE HYDROCHLORIDE
     Indication: PROPHYLAXIS
     Route: 048
  15. QUETIAPINE. [Suspect]
     Active Substance: QUETIAPINE
     Indication: PSYCHOTIC DISORDER
     Route: 048
  16. TRAZODONE [Suspect]
     Active Substance: TRAZODONE HYDROCHLORIDE
     Indication: DEPRESSION
     Route: 048
  17. CALCIUM CARBONATE. [Concomitant]
     Active Substance: CALCIUM CARBONATE
  18. IMODIUM [Concomitant]
     Active Substance: LOPERAMIDE HYDROCHLORIDE
  19. TEGRETOL [Suspect]
     Active Substance: CARBAMAZEPINE
     Indication: HYPOMANIA
     Route: 048
  20. BISACODYL. [Concomitant]
     Active Substance: BISACODYL
  21. BETACAROTENE [Concomitant]
     Active Substance: .BETA.-CAROTENE
  22. CHLORAL HYDRATE [Concomitant]
     Active Substance: CHLORAL HYDRATE

REACTIONS (12)
  - Vomiting [Unknown]
  - Jaundice cholestatic [Unknown]
  - Condition aggravated [Unknown]
  - Psychotic disorder [Unknown]
  - Blood bilirubin increased [Unknown]
  - Cholelithiasis [Unknown]
  - Hepatotoxicity [Unknown]
  - Nausea [Unknown]
  - Hepatic enzyme increased [Unknown]
  - Hypomania [Unknown]
  - Pneumonia [Unknown]
  - Schizophrenia [Unknown]
